FAERS Safety Report 12476613 (Version 2)
Quarter: 2016Q2

REPORT INFORMATION
  Report Type: Report from Study
  Country: KP (occurrence: KR)
  Receive Date: 20160617
  Receipt Date: 20160623
  Transmission Date: 20160815
  Serious: Yes (Death, Hospitalization)
  Sender: FDA-Public Use
  Company Number: PHHY2016KR082882

PATIENT
  Age: 64 Year
  Sex: Female
  Weight: 59.5 kg

DRUGS (1)
  1. VOTRIENT [Suspect]
     Active Substance: PAZOPANIB HYDROCHLORIDE
     Indication: RENAL CELL CARCINOMA
     Dosage: 800 MG, QD
     Route: 048
     Dates: start: 20151210, end: 20160322

REACTIONS (8)
  - Metastases to spine [Unknown]
  - Malignant neoplasm progression [Fatal]
  - Hypermetabolism [Fatal]
  - Metastases to bone [Fatal]
  - Spinal osteoarthritis [Unknown]
  - Abdominal pain [Recovered/Resolved with Sequelae]
  - Compression fracture [Unknown]
  - Back pain [Recovered/Resolved with Sequelae]

NARRATIVE: CASE EVENT DATE: 20160303
